FAERS Safety Report 9736486 (Version 1)
Quarter: 2013Q4

REPORT INFORMATION
  Report Type: Spontaneous
  Country: BR (occurrence: BR)
  Receive Date: 20131206
  Receipt Date: 20131206
  Transmission Date: 20140711
  Serious: Yes (Other)
  Sender: FDA-Public Use
  Company Number: BR-SA-2013SA124185

PATIENT
  Age: 88 Year
  Sex: Male
  Weight: 78 kg

DRUGS (10)
  1. LANTUS [Suspect]
     Indication: TYPE 1 DIABETES MELLITUS
     Route: 058
     Dates: start: 2009
  2. CLIKSTAR [Concomitant]
  3. DEPURA [Concomitant]
     Dates: start: 201309
  4. VITAMIN E [Concomitant]
     Dates: start: 201309
  5. CEBRALAT [Concomitant]
     Indication: ANGIOPATHY
     Dates: start: 2011
  6. PANTOPRAZOLE [Concomitant]
     Indication: GASTRITIS
     Dates: start: 2012
  7. PLAQUINOL [Concomitant]
     Indication: ARTHRITIS
     Dates: start: 2013
  8. SPIRONOLACTONE [Concomitant]
     Indication: POLYURIA
     Dates: start: 2013
  9. MIRTAZAPINE [Concomitant]
     Indication: DEPRESSION
     Dates: start: 2013
  10. TRAYENTA [Concomitant]
     Indication: TYPE 1 DIABETES MELLITUS
     Dates: start: 2013

REACTIONS (1)
  - Hepatic cirrhosis [Not Recovered/Not Resolved]
